FAERS Safety Report 6595624-X (Version None)
Quarter: 2010Q1

REPORT INFORMATION
  Report Type: 
  Country: None (occurrence: None)
  Receive Date: 20100223
  Receipt Date: 20100218
  Transmission Date: 20100710
  Serious: Yes (Death, Hospitalization)
  Sender: FDA-Public Use
  Company Number: IT-BRISTOL-MYERS SQUIBB COMPANY-14982326

PATIENT
  Age: 83 Year
  Sex: Female

DRUGS (1)
  1. COUMADIN [Suspect]
     Indication: ATRIAL FLUTTER
     Dosage: 1 DOSAGE FORM = 1 POSOLOGIC UNIT; INTERRUPTED ON 06NOV09
     Route: 048
     Dates: start: 20090101

REACTIONS (2)
  - APHASIA [None]
  - HEMIPLEGIA [None]
